FAERS Safety Report 8838231 (Version 1)
Quarter: 2012Q4

REPORT INFORMATION
  Report Type: 
  Country: US (occurrence: US)
  Receive Date: 20121012
  Receipt Date: 20121012
  Transmission Date: 20130627
  Serious: No
  Sender: FDA-Public Use
  Company Number: US-ROCHE-GNE242154

PATIENT
  Age: 10 Year
  Sex: Male

DRUGS (2)
  1. NUTROPIN AQ [Suspect]
     Indication: EMPTY SELLA SYNDROME
     Dosage: 1.4 mg, qd
     Route: 058
     Dates: start: 20070505
  2. NUTROPIN AQ [Suspect]
     Indication: BODY HEIGHT BELOW NORMAL

REACTIONS (1)
  - Injection site pain [Recovered/Resolved]
